FAERS Safety Report 25230906 (Version 3)
Quarter: 2025Q2

REPORT INFORMATION
  Report Type: Spontaneous
  Country: US (occurrence: US)
  Receive Date: 20250423
  Receipt Date: 20250606
  Transmission Date: 20250717
  Serious: No
  Sender: MYLAN
  Company Number: US-MYLANLABS-2025M1032568

PATIENT
  Age: 79 Year
  Sex: Female
  Weight: 51.25 kg

DRUGS (16)
  1. BREYNA [Suspect]
     Active Substance: BUDESONIDE\FORMOTEROL FUMARATE
     Indication: Asthma
     Dosage: 160/4.5 MICROGRAM, QID (4 PUFFS A DAY)
     Route: 055
  2. BREYNA [Suspect]
     Active Substance: BUDESONIDE\FORMOTEROL FUMARATE
     Dosage: 160/4.5 MICROGRAM, QID (4 PUFFS A DAY)
  3. BREYNA [Suspect]
     Active Substance: BUDESONIDE\FORMOTEROL FUMARATE
     Dosage: 160/4.5 MICROGRAM, QID (4 PUFFS A DAY)
  4. BREYNA [Suspect]
     Active Substance: BUDESONIDE\FORMOTEROL FUMARATE
     Dosage: 160/4.5 MICROGRAM, QID (4 PUFFS A DAY)
     Route: 055
  5. BREYNA [Suspect]
     Active Substance: BUDESONIDE\FORMOTEROL FUMARATE
     Dosage: 320/9 MICROGRAM, BID (TWO INHALATIONS TWICE A DAY)
     Route: 055
     Dates: start: 20250314, end: 20250412
  6. BREYNA [Suspect]
     Active Substance: BUDESONIDE\FORMOTEROL FUMARATE
     Dosage: 320/9 MICROGRAM, BID (TWO INHALATIONS TWICE A DAY)
     Dates: start: 20250314, end: 20250412
  7. BREYNA [Suspect]
     Active Substance: BUDESONIDE\FORMOTEROL FUMARATE
     Dosage: 320/9 MICROGRAM, BID (TWO INHALATIONS TWICE A DAY)
     Dates: start: 20250314, end: 20250412
  8. BREYNA [Suspect]
     Active Substance: BUDESONIDE\FORMOTEROL FUMARATE
     Dosage: 320/9 MICROGRAM, BID (TWO INHALATIONS TWICE A DAY)
     Route: 055
     Dates: start: 20250314, end: 20250412
  9. ALBUTEROL [Concomitant]
     Active Substance: ALBUTEROL
  10. ALBUTEROL [Concomitant]
     Active Substance: ALBUTEROL
     Route: 065
  11. ALBUTEROL [Concomitant]
     Active Substance: ALBUTEROL
     Route: 065
  12. ALBUTEROL [Concomitant]
     Active Substance: ALBUTEROL
  13. INCRUSE ELLIPTA [Concomitant]
     Active Substance: UMECLIDINIUM BROMIDE
  14. INCRUSE ELLIPTA [Concomitant]
     Active Substance: UMECLIDINIUM BROMIDE
     Route: 065
  15. INCRUSE ELLIPTA [Concomitant]
     Active Substance: UMECLIDINIUM BROMIDE
     Route: 065
  16. INCRUSE ELLIPTA [Concomitant]
     Active Substance: UMECLIDINIUM BROMIDE

REACTIONS (5)
  - Device difficult to use [Unknown]
  - Wrong technique in product usage process [Unknown]
  - Device malfunction [Unknown]
  - Product design issue [Unknown]
  - Device delivery system issue [Unknown]

NARRATIVE: CASE EVENT DATE: 20250301
